FAERS Safety Report 6464193-7 (Version None)
Quarter: 2009Q4

REPORT INFORMATION
  Report Type: 
  Country: None (occurrence: None)
  Receive Date: 20091201
  Receipt Date: 20091119
  Transmission Date: 20100525
  Serious: Yes (Other)
  Sender: FDA-Public Use
  Company Number: PHEH2009US16324

PATIENT
  Sex: Female

DRUGS (2)
  1. RECLAST [Suspect]
  2. FOSAMAX [Suspect]

REACTIONS (2)
  - FALL [None]
  - STRESS FRACTURE [None]
